FAERS Safety Report 18810591 (Version 1)
Quarter: 2021Q1

REPORT INFORMATION
  Report Type: Spontaneous
  Country: CN (occurrence: CN)
  Receive Date: 20210129
  Receipt Date: 20210129
  Transmission Date: 20210419
  Serious: Yes (Hospitalization, Other)
  Sender: FDA-Public Use
  Company Number: CN-PFIZER INC-2021036377

PATIENT
  Age: 81 Year
  Sex: Male
  Weight: 55 kg

DRUGS (3)
  1. ZYVOX [Suspect]
     Active Substance: LINEZOLID
     Indication: ANTI-INFECTIVE THERAPY
     Dosage: 0.600 G, 2X/DAY
     Route: 041
     Dates: start: 20201230, end: 20210108
  2. SULPERAZON [Suspect]
     Active Substance: CEFOPERAZONE SODIUM\SULBACTAM SODIUM
     Indication: ANTI-INFECTIVE THERAPY
     Dosage: 3 G, 3X/DAY
     Route: 041
     Dates: start: 20201223, end: 20210102
  3. SODIUM CHLORIDE. [Concomitant]
     Active Substance: SODIUM CHLORIDE
     Indication: VEHICLE SOLUTION USE
     Dosage: 250 ML, 1X/DAY
     Route: 041
     Dates: start: 20201223, end: 20210102

REACTIONS (6)
  - Off label use [Unknown]
  - International normalised ratio increased [Recovering/Resolving]
  - Prothrombin time prolonged [Recovering/Resolving]
  - Platelet count decreased [Recovered/Resolved]
  - Coagulopathy [Recovering/Resolving]
  - Myelosuppression [Recovered/Resolved]

NARRATIVE: CASE EVENT DATE: 20201223
